FAERS Safety Report 5630298-3 (Version None)
Quarter: 2008Q1

REPORT INFORMATION
  Report Type: 
  Country: None (occurrence: None)
  Receive Date: 20080213
  Receipt Date: 20080204
  Transmission Date: 20080703
  Serious: Yes (Death)
  Sender: FDA-Public Use
  Company Number: 2008-01065

PATIENT
  Age: 52 Year
  Sex: Female

DRUGS (7)
  1. CHLORDIAZEPOXIDE AND AMITRIPTYLINE [Suspect]
  2. VERAPAMIL [Suspect]
  3. GABAPENTIN [Suspect]
  4. DIAZEPAM [Suspect]
  5. BACLOFEN [Suspect]
  6. PROCHLORPERAZINE EDISYLATE (WATSON LABORATORIES)(PROCHLORPERAZINE EDIS [Suspect]
  7. METHADONE HCL [Suspect]

REACTIONS (1)
  - CARDIO-RESPIRATORY ARREST [None]
